FAERS Safety Report 5753224-5 (Version None)
Quarter: 2008Q2

REPORT INFORMATION
  Report Type: 
  Country: None (occurrence: None)
  Receive Date: 20080530
  Receipt Date: 20071207
  Transmission Date: 20081010
  Serious: No
  Sender: FDA-Public Use
  Company Number: US-BAUSCH-2007BL004459

PATIENT
  Age: 77 Year
  Sex: Male

DRUGS (1)
  1. GENTAMICIN SULFATE [Suspect]
     Indication: CONJUNCTIVITIS
     Route: 047
     Dates: start: 20071206, end: 20071206

REACTIONS (1)
  - VISION BLURRED [None]
